FAERS Safety Report 8343420-5 (Version None)
Quarter: 2012Q2

REPORT INFORMATION
  Report Type: 
  Country: None (occurrence: None)
  Receive Date: 20120503
  Receipt Date: 20120503
  Transmission Date: 20120825
  Serious: No
  Sender: FDA-Public Use
  Company Number: None

PATIENT
  Age: 74 Year
  Sex: Female

DRUGS (1)
  1. ADCIRCA [Suspect]
     Dosage: 40 EVERY DAY ORAL
     Route: 048
     Dates: start: 20120419, end: 20120419

REACTIONS (2)
  - BACK PAIN [None]
  - DRUG HYPERSENSITIVITY [None]
